FAERS Safety Report 7424141-X (Version None)
Quarter: 2011Q2

REPORT INFORMATION
  Report Type: 
  Country: None (occurrence: None)
  Receive Date: 20110419
  Receipt Date: 20110418
  Transmission Date: 20111010
  Serious: Yes (Hospitalization)
  Sender: FDA-Public Use
  Company Number: US-TEVA-277083USA

PATIENT
  Age: 48 Year
  Sex: Female

DRUGS (3)
  1. DIPHENHYDRAMINE HYDROCHLORIDE [Suspect]
  2. NORTRIPTYLINE [Suspect]
  3. AMITRIPTYLINE [Suspect]

REACTIONS (2)
  - OVERDOSE [None]
  - DELIRIUM [None]
